FAERS Safety Report 15674807 (Version 1)
Quarter: 2018Q4

REPORT INFORMATION
  Report Type: Spontaneous
  Country: PL (occurrence: PL)
  Receive Date: 20181130
  Receipt Date: 20181130
  Transmission Date: 20190205
  Serious: Yes (Death)
  Sender: FDA-Public Use
  Company Number: PL-ACCORD-094298

PATIENT
  Age: 57 Year
  Sex: Female
  Weight: 55 kg

DRUGS (1)
  1. CARBOPLATIN ACCORD [Suspect]
     Active Substance: CARBOPLATIN
     Indication: OVARIAN CANCER
     Route: 042
     Dates: start: 20171130, end: 20171130

REACTIONS (8)
  - Vomiting [Fatal]
  - Cardiac arrest [Fatal]
  - Heart rate increased [Fatal]
  - Tremor [Fatal]
  - Nausea [Fatal]
  - Blood pressure increased [Fatal]
  - Dysuria [Fatal]
  - Loss of consciousness [Fatal]

NARRATIVE: CASE EVENT DATE: 20171130
